FAERS Safety Report 20735283 (Version 2)
Quarter: 2022Q2

REPORT INFORMATION
  Report Type: Spontaneous
  Country: US (occurrence: US)
  Receive Date: 20220421
  Receipt Date: 20220517
  Transmission Date: 20220721
  Serious: Yes (Hospitalization, Other)
  Sender: FDA-Public Use
  Company Number: US-PFIZER INC-202200577706

PATIENT
  Age: 44 Year
  Sex: Male
  Weight: 93.44 kg

DRUGS (1)
  1. GENOTROPIN [Suspect]
     Active Substance: SOMATROPIN
     Indication: Immune system disorder
     Dosage: 0.5 MG, DAILY (NIGHTLY)
     Dates: start: 2009

REACTIONS (2)
  - Anaemia [Unknown]
  - Urinary retention [Unknown]
